FAERS Safety Report 6020187-7 (Version None)
Quarter: 2008Q4

REPORT INFORMATION
  Report Type: 
  Country: None (occurrence: None)
  Receive Date: 20081226
  Receipt Date: 20081219
  Transmission Date: 20090506
  Serious: Yes (Death)
  Sender: FDA-Public Use
  Company Number: US-ROCHE-597160

PATIENT
  Sex: Female

DRUGS (3)
  1. CAPECITABINE [Suspect]
     Indication: COLORECTAL CANCER
     Route: 065
     Dates: start: 20081008
  2. CAPECITABINE [Suspect]
     Dosage: DOSE REDUCED AFTER TWO CYCLES
     Route: 065
  3. AVASTIN [Concomitant]

REACTIONS (1)
  - DEATH [None]
